FAERS Safety Report 17143533 (Version 2)
Quarter: 2020Q1

REPORT INFORMATION
  Report Type: Spontaneous
  Country: CN (occurrence: CN)
  Receive Date: 20191212
  Receipt Date: 20200102
  Transmission Date: 20200409
  Serious: Yes (Other)
  Sender: FDA-Public Use
  Company Number: CN-ASTRAZENECA-2019SF78689

PATIENT
  Age: 70 Year
  Sex: Male

DRUGS (12)
  1. SPIRONOLACTONE. [Concomitant]
     Active Substance: SPIRONOLACTONE
     Dates: start: 20191123, end: 20191125
  2. PENICILLIN-STREPTOMYCIN [Concomitant]
  3. BETALOC [Concomitant]
     Active Substance: METOPROLOL TARTRATE
     Dates: start: 20191117, end: 20191127
  4. GLUCOPHAGE [Concomitant]
     Active Substance: METFORMIN HYDROCHLORIDE
     Route: 065
     Dates: start: 20191119, end: 20191122
  5. GLIMEPIRIDE. [Concomitant]
     Active Substance: GLIMEPIRIDE
     Dates: start: 20191118, end: 20191127
  6. FUROSEMIDE. [Concomitant]
     Active Substance: FUROSEMIDE
     Dates: start: 20191123, end: 20191125
  7. STATINS [Concomitant]
     Active Substance: UNSPECIFIED INGREDIENT
  8. FORXIGA [Suspect]
     Active Substance: DAPAGLIFLOZIN
     Indication: TYPE 2 DIABETES MELLITUS
     Route: 048
     Dates: start: 20191121, end: 20191123
  9. ACARBOSE. [Concomitant]
     Active Substance: ACARBOSE
     Route: 065
     Dates: start: 20191121, end: 20191126
  10. ACERTIL [Concomitant]
     Active Substance: PERINDOPRIL
     Dates: start: 20191124, end: 20191128
  11. CORLENTOR [Concomitant]
     Active Substance: IVABRADINE HYDROCHLORIDE
     Dates: start: 20191119, end: 20191127
  12. SIGMART [Concomitant]
     Active Substance: NICORANDIL
     Dates: start: 20191123, end: 20191127

REACTIONS (2)
  - Leg amputation [Unknown]
  - Femoral artery embolism [Unknown]

NARRATIVE: CASE EVENT DATE: 20191122
